FAERS Safety Report 9935123 (Version 3)
Quarter: 2015Q2

REPORT INFORMATION
  Report Type: Spontaneous
  Country: FR (occurrence: FR)
  Receive Date: 20140228
  Receipt Date: 20150624
  Transmission Date: 20150821
  Serious: Yes (Hospitalization, Other)
  Sender: FDA-Public Use
  Company Number: FR-PFIZER INC-2014056311

PATIENT
  Age: 37 Year
  Sex: Male

DRUGS (6)
  1. EFFEXOR [Suspect]
     Active Substance: VENLAFAXINE HYDROCHLORIDE
     Indication: DEPRESSION
     Dosage: 37.5 MG, 1X/DAY
     Route: 048
     Dates: start: 201312, end: 20140207
  2. NASONEX [Suspect]
     Active Substance: MOMETASONE FUROATE
     Indication: INFLUENZA LIKE ILLNESS
     Dosage: UNK
     Route: 045
     Dates: start: 20140110, end: 20140207
  3. CARBOLEVURE [Suspect]
     Active Substance: YEAST
     Dosage: UNK
     Route: 048
     Dates: start: 20140110, end: 20140207
  4. CEFPODOXIME [Suspect]
     Active Substance: CEFPODOXIME
     Indication: INFLUENZA LIKE ILLNESS
     Dosage: 200 MG, 2X/DAY
     Route: 065
     Dates: start: 20140203, end: 20140207
  5. PULMODEXANE [Suspect]
     Active Substance: DEXTROMETHORPHAN HYDROBROMIDE
     Indication: INFLUENZA LIKE ILLNESS
     Dosage: UNK
     Route: 048
     Dates: start: 20140203, end: 20140207
  6. PARACETAMOL [Suspect]
     Active Substance: ACETAMINOPHEN
     Indication: INFLUENZA LIKE ILLNESS
     Dosage: 1 G, 3X/DAY
     Route: 048
     Dates: start: 20140203, end: 20140207

REACTIONS (3)
  - Pancreatitis relapsing [Recovered/Resolved]
  - Influenza like illness [Unknown]
  - Prerenal failure [Unknown]

NARRATIVE: CASE EVENT DATE: 20131231
